FAERS Safety Report 15044554 (Version 4)
Quarter: 2019Q1

REPORT INFORMATION
  Report Type: Spontaneous
  Country: US (occurrence: US)
  Receive Date: 20180621
  Receipt Date: 20190312
  Transmission Date: 20190417
  Serious: Yes (Other)
  Sender: FDA-Public Use
  Company Number: US-ASTRAZENECA-2018SE79387

PATIENT
  Age: 25588 Day
  Sex: Female

DRUGS (53)
  1. NEXIUM [Suspect]
     Active Substance: ESOMEPRAZOLE MAGNESIUM
     Dosage: GENERIC
     Route: 048
     Dates: start: 20160106
  2. ACTOS [Concomitant]
     Active Substance: PIOGLITAZONE HYDROCHLORIDE
  3. AVAPRO [Concomitant]
     Active Substance: IRBESARTAN
  4. FLONASE [Concomitant]
     Active Substance: FLUTICASONE PROPIONATE
  5. MONTELUKAST [Concomitant]
     Active Substance: MONTELUKAST SODIUM
  6. VAGIFEM [Concomitant]
     Active Substance: ESTRADIOL
  7. SPIRIVA [Concomitant]
     Active Substance: TIOTROPIUM BROMIDE MONOHYDRATE
  8. PRAVASTATIN. [Concomitant]
     Active Substance: PRAVASTATIN
  9. CICLOPIROX. [Concomitant]
     Active Substance: CICLOPIROX
  10. NITROGLYCERIN. [Concomitant]
     Active Substance: NITROGLYCERIN
  11. TRAMADOL. [Concomitant]
     Active Substance: TRAMADOL
  12. CILOSTAZOL. [Concomitant]
     Active Substance: CILOSTAZOL
  13. GLIMEPIRIDE. [Concomitant]
     Active Substance: GLIMEPIRIDE
  14. PANTOPRAZOLE [Concomitant]
     Active Substance: PANTOPRAZOLE
  15. ROPINIROLE. [Concomitant]
     Active Substance: ROPINIROLE
  16. LASIX [Concomitant]
     Active Substance: FUROSEMIDE
  17. ATACAND [Concomitant]
     Active Substance: CANDESARTAN CILEXETIL
  18. FOLBEE PLUS [Concomitant]
  19. SIMVASTATIN. [Concomitant]
     Active Substance: SIMVASTATIN
  20. DULERA [Concomitant]
     Active Substance: FORMOTEROL FUMARATE DIHYDRATE\MOMETASONE FUROATE
  21. LYRICA [Concomitant]
     Active Substance: PREGABALIN
  22. OMEPRAZOLE. [Concomitant]
     Active Substance: OMEPRAZOLE
  23. LISINOPRIL. [Concomitant]
     Active Substance: LISINOPRIL
  24. NEXIUM [Suspect]
     Active Substance: ESOMEPRAZOLE MAGNESIUM
     Route: 065
     Dates: start: 20060503
  25. NIFEDIPINE. [Concomitant]
     Active Substance: NIFEDIPINE
  26. BUSPIRONE [Concomitant]
     Active Substance: BUSPIRONE HYDROCHLORIDE
  27. ZOLPIDEM [Concomitant]
     Active Substance: ZOLPIDEM\ZOLPIDEM TARTRATE
  28. LABETALOL [Concomitant]
     Active Substance: LABETALOL\LABETALOL HYDROCHLORIDE
  29. PLAVIX [Concomitant]
     Active Substance: CLOPIDOGREL BISULFATE
  30. CELEBREX [Concomitant]
     Active Substance: CELECOXIB
  31. LANTUS [Concomitant]
     Active Substance: INSULIN GLARGINE
  32. LOTENSIN [Concomitant]
     Active Substance: BENAZEPRIL HYDROCHLORIDE
  33. ATENOLOL. [Concomitant]
     Active Substance: ATENOLOL
  34. HYDROCODONE/ACETAMINOPHEN [Concomitant]
     Active Substance: ACETAMINOPHEN\HYDROCODONE
  35. CYMBALTA [Concomitant]
     Active Substance: DULOXETINE HYDROCHLORIDE
  36. CYCLOBENZAPRINE. [Concomitant]
     Active Substance: CYCLOBENZAPRINE
  37. NEXIUM [Suspect]
     Active Substance: ESOMEPRAZOLE MAGNESIUM
     Route: 048
     Dates: start: 20090702
  38. PEPCID [Concomitant]
     Active Substance: FAMOTIDINE
  39. TUMS [Concomitant]
     Active Substance: CALCIUM CARBONATE
  40. PENTOXIFYLLINE. [Concomitant]
     Active Substance: PENTOXIFYLLINE
  41. RENVELA [Concomitant]
     Active Substance: SEVELAMER CARBONATE
  42. WELCHOL [Concomitant]
     Active Substance: COLESEVELAM HYDROCHLORIDE
  43. SYMBICORT [Concomitant]
     Active Substance: BUDESONIDE\FORMOTEROL FUMARATE DIHYDRATE
  44. PAROXETINE. [Concomitant]
     Active Substance: PAROXETINE
  45. NEXIUM [Suspect]
     Active Substance: ESOMEPRAZOLE MAGNESIUM
     Route: 048
     Dates: start: 201301, end: 201310
  46. GLUCOSAMINE [Concomitant]
     Active Substance: GLUCOSAMINE
  47. ZETIA [Concomitant]
     Active Substance: EZETIMIBE
  48. FENOFIBRATE. [Concomitant]
     Active Substance: FENOFIBRATE
  49. FAMOTIDINE. [Concomitant]
     Active Substance: FAMOTIDINE
  50. OCEAN SALINE NASAL SPRAY [Concomitant]
     Active Substance: SODIUM CHLORIDE
  51. VALTREX [Concomitant]
     Active Substance: VALACYCLOVIR HYDROCHLORIDE
  52. DULOXETINE. [Concomitant]
     Active Substance: DULOXETINE
  53. PNEUMOVAX 23 [Concomitant]
     Active Substance: PNEUMOCOCCAL VACCINE, POLYVALENT 23

REACTIONS (6)
  - End stage renal disease [Unknown]
  - Renal failure [Unknown]
  - Chronic kidney disease [Unknown]
  - Acute kidney injury [Unknown]
  - Hyperparathyroidism secondary [Unknown]
  - Nephrogenic anaemia [Unknown]

NARRATIVE: CASE EVENT DATE: 20060207
